FAERS Safety Report 25832974 (Version 1)
Quarter: 2025Q3

REPORT INFORMATION
  Report Type: Spontaneous
  Country: US (occurrence: None)
  Receive Date: 20250922
  Receipt Date: 20250922
  Transmission Date: 20251021
  Serious: No
  Sender: FDA-CTU
  Company Number: None

PATIENT
  Age: 78 Year
  Sex: Female
  Weight: 51.75 kg

DRUGS (4)
  1. TEMAZEPAM [Suspect]
     Active Substance: TEMAZEPAM
     Indication: Insomnia
     Dosage: OTHER QUANTITY : 1 CAPSULE(S);?FREQUENCY : DAILY;?
     Route: 048
  2. GABAPENTIN [Concomitant]
     Active Substance: GABAPENTIN
  3. PAROXETINE [Concomitant]
     Active Substance: PAROXETINE
  4. REPATHA [Concomitant]
     Active Substance: EVOLOCUMAB

REACTIONS (4)
  - Headache [None]
  - Nightmare [None]
  - Neck pain [None]
  - Sleep disorder [None]

NARRATIVE: CASE EVENT DATE: 20250919
